FAERS Safety Report 8981872 (Version 1)
Quarter: 2012Q4

REPORT INFORMATION
  Report Type: 
  Country: FR (occurrence: FR)
  Receive Date: 20121223
  Receipt Date: 20121223
  Transmission Date: 20130627
  Serious: Yes (Hospitalization)
  Sender: FDA-Public Use
  Company Number: PHHY2012FR118334

PATIENT
  Age: 63 Year
  Sex: Female
  Weight: 57 kg

DRUGS (12)
  1. CICLOSPORIN [Suspect]
     Indication: KIDNEY TRANSPLANT REJECTION
     Dosage: 200 mg, in a day
     Dates: start: 20111019
  2. CERTICAN [Suspect]
     Indication: KIDNEY TRANSPLANT REJECTION
     Dosage: 3 mg, once a day
     Dates: start: 20111119
  3. CERTICAN [Suspect]
     Dosage: 2 UNK, once a day
     Route: 048
     Dates: start: 20111203, end: 20120414
  4. PREDNISOLONE [Suspect]
     Indication: KIDNEY TRANSPLANT REJECTION
     Dosage: 10 mg, UNK
     Route: 048
     Dates: start: 20111019
  5. MYCOPHENOLATE MOFETIL [Suspect]
     Indication: KIDNEY TRANSPLANT REJECTION
     Dosage: 3 g, QD
     Route: 048
     Dates: start: 20111019
  6. MYCOPHENOLATE MOFETIL [Suspect]
     Dosage: 0.5 UNK, UNK
     Dates: start: 20111104
  7. PROGRAF [Suspect]
     Indication: KIDNEY TRANSPLANT REJECTION
     Dosage: 5 mg, once a day
     Dates: start: 20120413
  8. CORDARONE [Concomitant]
     Dates: start: 20111022
  9. AMIODARONE HYDROCHLORIDE [Concomitant]
     Dosage: 1 DF, UNK
     Route: 048
  10. CALCIUM CARBONATE [Concomitant]
     Dosage: 500 mg, TID
  11. ALFACALCIDOL [Concomitant]
     Dosage: 1 ug, per day
  12. CHOLECALCIFEROL [Concomitant]
     Dosage: 1 DF, per month

REACTIONS (13)
  - Pulmonary oedema [Not Recovered/Not Resolved]
  - Inflammation [Unknown]
  - Diarrhoea [Recovering/Resolving]
  - Anaemia [Unknown]
  - Cytomegalovirus infection [Unknown]
  - Bacterial pyelonephritis [Not Recovered/Not Resolved]
  - Urinary tract infection [Recovered/Resolved]
  - Renal lymphocele [Recovered/Resolved]
  - Pollakiuria [Unknown]
  - Blood creatinine increased [Unknown]
  - Pyuria [Unknown]
  - Dysuria [Unknown]
  - Pyrexia [Unknown]
